FAERS Safety Report 8787520 (Version 1)
Quarter: 2012Q4

REPORT INFORMATION
  Report Type: Report from Study
  Country: US (occurrence: US)
  Receive Date: 20120914
  Receipt Date: 20120914
  Transmission Date: 20130627
  Serious: No
  Sender: FDA-Public Use
  Company Number: US-VERTEX PHARMACEUTICAL INC.-AE-2012-010661

PATIENT
  Sex: Male

DRUGS (3)
  1. INCIVEK [Suspect]
     Indication: HEPATITIS C
     Route: 048
  2. OMEPRAZOLE [Concomitant]
  3. LEVOTHYROXIN [Concomitant]

REACTIONS (2)
  - Dyspnoea [Unknown]
  - Fatigue [Unknown]
